FAERS Safety Report 24716821 (Version 1)
Quarter: 2024Q4

REPORT INFORMATION
  Report Type: Report from Study
  Country: CO (occurrence: CO)
  Receive Date: 20241210
  Receipt Date: 20241210
  Transmission Date: 20250115
  Serious: Yes (Other)
  Sender: TAKEDA
  Company Number: CO-TAKEDA-2024TUS104990

PATIENT
  Age: 71 Year
  Sex: Female
  Weight: 40 kg

DRUGS (2)
  1. VEDOLIZUMAB [Suspect]
     Active Substance: VEDOLIZUMAB
     Indication: Crohn^s disease
     Dosage: 300 MILLIGRAM
  2. PROPRANOLOL [Concomitant]
     Active Substance: PROPRANOLOL HYDROCHLORIDE
     Indication: Essential tremor
     Dosage: UNK

REACTIONS (10)
  - Nephrolithiasis [Unknown]
  - Headache [Unknown]
  - Insomnia [Unknown]
  - Abdominal pain upper [Recovered/Resolved]
  - Poor venous access [Recovered/Resolved]
  - Pain [Recovered/Resolved]
  - Weight increased [Unknown]
  - Body height decreased [Unknown]
  - Abdominal pain [Unknown]
  - Back pain [Recovered/Resolved]

NARRATIVE: CASE EVENT DATE: 20241025
